FAERS Safety Report 7569638-7 (Version None)
Quarter: 2011Q2

REPORT INFORMATION
  Report Type: 
  Country: None (occurrence: None)
  Receive Date: 20110624
  Receipt Date: 20110620
  Transmission Date: 20111010
  Serious: No
  Sender: FDA-Public Use
  Company Number: US-PFIZER INC-2011138627

PATIENT

DRUGS (1)
  1. LIPITOR [Suspect]
     Dosage: UNK
     Dates: start: 19980101

REACTIONS (3)
  - ASTHENIA [None]
  - PAIN [None]
  - AMNESIA [None]
